FAERS Safety Report 5086408-2 (Version None)
Quarter: 2006Q3

REPORT INFORMATION
  Report Type: 
  Country: None (occurrence: None)
  Receive Date: 20060703
  Receipt Date: 20060321
  Transmission Date: 20061208
  Serious: Yes (Life-Threatening)
  Sender: FDA-Public Use
  Company Number: 2006S1002491

PATIENT
  Age: 48 Year
  Sex: Male
  Weight: 74.3899 kg

DRUGS (7)
  1. CLOZAPINE [Suspect]
     Indication: SCHIZOPHRENIA
     Dosage: SEE IMAGE
     Route: 048
     Dates: end: 20060330
  2. CLOZAPINE [Suspect]
     Indication: SCHIZOPHRENIA
     Dosage: SEE IMAGE
     Route: 048
     Dates: end: 20060330
  3. BENZTROPEINE [Concomitant]
  4. LORAZEPAM [Concomitant]
  5. ATORVASTATIN [Concomitant]
  6. ARIPIPRAZOLE [Concomitant]
  7. LACTULOSE [Concomitant]

REACTIONS (3)
  - AGRANULOCYTOSIS [None]
  - GRANULOCYTOPENIA [None]
  - LEUKOPENIA [None]
